FAERS Safety Report 19610764 (Version 3)
Quarter: 2022Q2

REPORT INFORMATION
  Report Type: Report from Study
  Country: US (occurrence: US)
  Receive Date: 20210726
  Receipt Date: 20220406
  Transmission Date: 20220720
  Serious: Yes (Hospitalization)
  Sender: FDA-Public Use
  Company Number: US-TAKEDA-US201920786

PATIENT
  Age: 65 Year
  Sex: Female

DRUGS (1)
  1. HUMAN IMMUNOGLOBULIN G [Suspect]
     Active Substance: HUMAN IMMUNOGLOBULIN G
     Indication: Primary immunodeficiency syndrome
     Dosage: 24 GRAM, MONTHLY
     Route: 065

REACTIONS (10)
  - Arthropathy [Unknown]
  - Anaemia vitamin B6 deficiency [Unknown]
  - Glucose tolerance impaired [Unknown]
  - Anaemia vitamin B12 deficiency [Unknown]
  - Dermatitis contact [Unknown]
  - Allergy to chemicals [Unknown]
  - Exostosis [Unknown]
  - Allergy to plants [Unknown]
  - Oedema [Unknown]
  - Pain [Unknown]

NARRATIVE: CASE EVENT DATE: 20210624
